FAERS Safety Report 9378628 (Version 3)
Quarter: 2013Q3

REPORT INFORMATION
  Report Type: Spontaneous
  Country: DE (occurrence: None)
  Receive Date: 20130626
  Receipt Date: 20130826
  Transmission Date: 20140515
  Serious: Yes (Other)
  Sender: FDA-Public Use
  Company Number: 1306-803

PATIENT
  Age: 77 Year
  Sex: Female

DRUGS (8)
  1. EYLEA [Suspect]
     Indication: AGE-RELATED MACULAR DEGENERATION
     Dosage: TOTAL OF 32 INJECTIONS
     Route: 031
     Dates: start: 20130611
  2. VISCOTEARS (CARBOMER) [Concomitant]
  3. FLOXAL (OFLOXACIN) [Concomitant]
  4. DEXAFAR (DEXAMETHASONE) [Concomitant]
  5. GANFORT (GANFORT) [Concomitant]
  6. VISMED (HYALURONATE SODIUM) [Concomitant]
  7. OCTENISEPT (OCTENISEPT /00972101/) [Concomitant]
  8. BETADINE (POVIDONE-IODINE) [Concomitant]

REACTIONS (3)
  - Pseudoendophthalmitis [None]
  - Visual acuity reduced [None]
  - Vitreous haemorrhage [None]
